FAERS Safety Report 4950798-9 (Version None)
Quarter: 2006Q1

REPORT INFORMATION
  Report Type: 
  Country: None (occurrence: None)
  Receive Date: 20060322
  Receipt Date: 20060315
  Transmission Date: 20060701
  Serious: Yes (Other)
  Sender: FDA-Public Use
  Company Number: PHFR2006GB01158

PATIENT
  Age: 24 Year
  Sex: Female

DRUGS (3)
  1. TRILEPTAL [Suspect]
     Indication: EPILEPSY
     Dosage: 600MG MANE + 1575MG NOCTE
     Route: 065
     Dates: start: 20050101
  2. PHENYTOIN [Concomitant]
     Dosage: UNK, UNK
     Route: 065
     Dates: start: 20051001
  3. FLUOXETINE HCL [Suspect]
     Indication: OBSESSIVE THOUGHTS
     Route: 065

REACTIONS (3)
  - ANXIETY [None]
  - OBSESSIVE THOUGHTS [None]
  - SUICIDAL IDEATION [None]
